FAERS Safety Report 24975124 (Version 2)
Quarter: 2025Q2

REPORT INFORMATION
  Report Type: Report from Study
  Country: CA (occurrence: CA)
  Receive Date: 20250217
  Receipt Date: 20250616
  Transmission Date: 20250716
  Serious: Yes (Other)
  Sender: TAKEDA
  Company Number: CA-TAKEDA-2024TUS064490

PATIENT
  Age: 71 Year
  Sex: Female

DRUGS (20)
  1. HUMAN IMMUNOGLOBULIN G\HYALURONIDASE RECOMBINANT HUMAN [Suspect]
     Active Substance: HUMAN IMMUNOGLOBULIN G\HYALURONIDASE (HUMAN RECOMBINANT)
     Indication: Primary immunodeficiency syndrome
     Dosage: 40 GRAM, Q4WEEKS
     Dates: start: 20240625
  2. HUMAN IMMUNOGLOBULIN G\HYALURONIDASE RECOMBINANT HUMAN [Suspect]
     Active Substance: HUMAN IMMUNOGLOBULIN G\HYALURONIDASE (HUMAN RECOMBINANT)
     Dosage: 40 GRAM, Q4WEEKS
  3. HUMAN IMMUNOGLOBULIN G\HYALURONIDASE RECOMBINANT HUMAN [Suspect]
     Active Substance: HUMAN IMMUNOGLOBULIN G\HYALURONIDASE (HUMAN RECOMBINANT)
     Dosage: UNK UNK, Q4WEEKS
  4. HUMAN IMMUNOGLOBULIN G\HYALURONIDASE RECOMBINANT HUMAN [Suspect]
     Active Substance: HUMAN IMMUNOGLOBULIN G\HYALURONIDASE (HUMAN RECOMBINANT)
     Dosage: 40 GRAM, MONTHLY
  5. HUMAN IMMUNOGLOBULIN G\HYALURONIDASE RECOMBINANT HUMAN [Suspect]
     Active Substance: HUMAN IMMUNOGLOBULIN G\HYALURONIDASE (HUMAN RECOMBINANT)
     Dosage: 45 GRAM, MONTHLY
  6. HUMAN IMMUNOGLOBULIN G\HYALURONIDASE RECOMBINANT HUMAN [Suspect]
     Active Substance: HUMAN IMMUNOGLOBULIN G\HYALURONIDASE (HUMAN RECOMBINANT)
     Dosage: 45 GRAM, Q4WEEKS
  7. HUMAN IMMUNOGLOBULIN G\HYALURONIDASE RECOMBINANT HUMAN [Suspect]
     Active Substance: HUMAN IMMUNOGLOBULIN G\HYALURONIDASE (HUMAN RECOMBINANT)
     Dosage: 45 GRAM, Q4WEEKS
  8. VANCOMYCIN [Concomitant]
     Active Substance: VANCOMYCIN
  9. DOXYCYCLINE HYDROCHLORIDE [Concomitant]
     Active Substance: DOXYCYCLINE HYDROCHLORIDE
  10. BETADERM [Concomitant]
     Active Substance: BETAMETHASONE VALERATE
  11. OXYBUTYNIN [Concomitant]
     Active Substance: OXYBUTYNIN
  12. VANCOMYCIN HYDROCHLORIDE [Concomitant]
     Active Substance: VANCOMYCIN HYDROCHLORIDE
  13. OXYBUTYNIN [Concomitant]
     Active Substance: OXYBUTYNIN
  14. DOXYCYCLINE HYCLATE [Concomitant]
     Active Substance: DOXYCYCLINE HYCLATE
  15. BISOPROLOL [Concomitant]
     Active Substance: BISOPROLOL
  16. DOXYCYCLINE [Concomitant]
     Active Substance: DOXYCYCLINE
  17. TRAMADOL [Concomitant]
     Active Substance: TRAMADOL
  18. RABEPRAZOLE [Concomitant]
     Active Substance: RABEPRAZOLE
  19. SPIRONOLACTONE [Concomitant]
     Active Substance: SPIRONOLACTONE
  20. CANDESARTAN [Concomitant]
     Active Substance: CANDESARTAN

REACTIONS (18)
  - Lower respiratory tract infection [Unknown]
  - Accidental exposure to product [Unknown]
  - Blood pressure fluctuation [Unknown]
  - Infusion site discharge [Unknown]
  - Infusion site reaction [Unknown]
  - Incorrect dose administered [Unknown]
  - Product dispensing error [Unknown]
  - Blood potassium increased [Not Recovered/Not Resolved]
  - Wrong technique in product usage process [Unknown]
  - Device alarm issue [Unknown]
  - Skin infection [Unknown]
  - Incorrect drug administration rate [Unknown]
  - Product use issue [Unknown]
  - Blood pressure increased [Not Recovered/Not Resolved]
  - Infusion site swelling [Recovering/Resolving]
  - Infusion site pain [Recovering/Resolving]
  - Infusion site erythema [Recovered/Resolved]
  - Infusion site pruritus [Recovered/Resolved]

NARRATIVE: CASE EVENT DATE: 20240625
